FAERS Safety Report 10121002 (Version 3)
Quarter: 2014Q2

REPORT INFORMATION
  Report Type: Spontaneous
  Country: JP (occurrence: JP)
  Receive Date: 20140425
  Receipt Date: 20140520
  Transmission Date: 20141212
  Serious: Yes (Other)
  Sender: FDA-Public Use
  Company Number: JP-GLAXOSMITHKLINE-B0988456A

PATIENT
  Age: 85 Year
  Sex: Male

DRUGS (4)
  1. FLUTIDE DISKUS [Suspect]
     Indication: ASTHMA
     Dosage: 100MCG TWICE PER DAY
     Route: 055
     Dates: start: 20030823, end: 20140207
  2. THEODUR [Concomitant]
     Dosage: 100MG TWICE PER DAY
     Route: 048
  3. SPIROPENT [Concomitant]
     Dosage: 100MCG TWICE PER DAY
     Route: 048
  4. KIPRES [Concomitant]
     Dosage: 10MG PER DAY
     Route: 048

REACTIONS (1)
  - Pulmonary tuberculosis [Recovering/Resolving]
